FAERS Safety Report 7536883-6 (Version None)
Quarter: 2011Q2

REPORT INFORMATION
  Report Type: 
  Country: None (occurrence: None)
  Receive Date: 20110609
  Receipt Date: 20110531
  Transmission Date: 20111010
  Serious: Yes (Other)
  Sender: FDA-Public Use
  Company Number: US-ASTRAZENECA-2011SE33505

PATIENT
  Age: 505 Month
  Sex: Female
  Weight: 90.7 kg

DRUGS (13)
  1. ZETIA [Concomitant]
  2. LORTAB [Concomitant]
  3. LEFLUNOMIDE [Concomitant]
  4. HYDROCHLOROTHIAZIDE [Concomitant]
  5. OMEPRAZOLE [Concomitant]
  6. LEVOTHYROXINE SODIUM [Concomitant]
  7. JANUVIA [Concomitant]
  8. SEROQUEL XR [Suspect]
     Indication: MAJOR DEPRESSION
     Route: 048
     Dates: start: 20000101
  9. SERTRALINE HYDROCHLORIDE [Concomitant]
  10. ENALAPRIL MALEATE [Concomitant]
  11. LOVASTATIN [Concomitant]
  12. ATENOLOL [Concomitant]
  13. METHOTREXATE [Concomitant]

REACTIONS (5)
  - ROTATOR CUFF REPAIR [None]
  - BACK INJURY [None]
  - ACCIDENT AT WORK [None]
  - NECK INJURY [None]
  - JOINT INJURY [None]
